FAERS Safety Report 11652501 (Version 1)
Quarter: 2015Q4

REPORT INFORMATION
  Report Type: Spontaneous
  Country: US (occurrence: None)
  Receive Date: 20151021
  Receipt Date: 20151021
  Transmission Date: 20160304
  Serious: No
  Sender: FDA-Public Use
  Company Number: None

PATIENT
  Age: 46 Year
  Sex: Female
  Weight: 63.7 kg

DRUGS (1)
  1. ALFA 2 INTERFERON 2B [Suspect]
     Active Substance: INTERFERON ALFA-2B
     Dates: end: 20140704

REACTIONS (2)
  - Hypokalaemia [None]
  - Disease progression [None]

NARRATIVE: CASE EVENT DATE: 20140707
